FAERS Safety Report 7040823-6 (Version None)
Quarter: 2010Q4

REPORT INFORMATION
  Report Type: 
  Country: None (occurrence: None)
  Receive Date: 20101013
  Receipt Date: 20101008
  Transmission Date: 20110411
  Serious: No
  Sender: FDA-Public Use
  Company Number: US-BIOGENIDEC-2010BI035052

PATIENT
  Age: 39 Year
  Sex: Female

DRUGS (3)
  1. AVONEX [Suspect]
     Indication: MULTIPLE SCLEROSIS
     Route: 030
     Dates: start: 20031006, end: 20060614
  2. AVONEX [Suspect]
     Route: 030
     Dates: start: 20070405, end: 20070501
  3. AVONEX [Suspect]
     Route: 030
     Dates: start: 20090428, end: 20090601

REACTIONS (5)
  - BACK PAIN [None]
  - INFLUENZA LIKE ILLNESS [None]
  - MUSCULAR WEAKNESS [None]
  - PARAESTHESIA [None]
  - PARALYSIS [None]
